FAERS Safety Report 6915927-6 (Version None)
Quarter: 2010Q3

REPORT INFORMATION
  Report Type: 
  Country: None (occurrence: None)
  Receive Date: 20100809
  Receipt Date: 20100809
  Transmission Date: 20110219
  Serious: No
  Sender: FDA-Public Use
  Company Number: None

PATIENT
  Sex: Female
  Weight: 89.3586 kg

DRUGS (1)
  1. LEVAQUIN [Suspect]
     Indication: ANTIBIOTIC THERAPY
     Dosage: 1 PER DAY
     Dates: start: 20100730, end: 20100807

REACTIONS (4)
  - ARTHRALGIA [None]
  - MUSCLE SPASMS [None]
  - PAIN [None]
  - TENDON PAIN [None]
